FAERS Safety Report 20157210 (Version 1)
Quarter: 2021Q4

REPORT INFORMATION
  Report Type: Spontaneous
  Country: US (occurrence: US)
  Receive Date: 20211207
  Receipt Date: 20211207
  Transmission Date: 20220303
  Serious: No
  Sender: FDA-Public Use
  Company Number: US-IBSA PHARMA INC.-2020IBS000220

PATIENT

DRUGS (3)
  1. TIROSINT [Suspect]
     Active Substance: LEVOTHYROXINE SODIUM
     Indication: Hypothyroidism
     Dosage: 2 DF, 50 MCG, QD
     Route: 048
     Dates: start: 202006
  2. TIROSINT [Suspect]
     Active Substance: LEVOTHYROXINE SODIUM
     Dosage: 100 ?G, QD
     Route: 048
     Dates: start: 20200921, end: 20201016
  3. TIROSINT [Suspect]
     Active Substance: LEVOTHYROXINE SODIUM
     Dosage: 2 DF, 50 MCG, QD
     Route: 048
     Dates: start: 20201017

REACTIONS (5)
  - Depressive symptom [Recovered/Resolved]
  - Fatigue [Recovered/Resolved]
  - Product complaint [Unknown]
  - Exposure during pregnancy [Unknown]
  - Blood thyroid stimulating hormone increased [Recovered/Resolved]

NARRATIVE: CASE EVENT DATE: 20200901
